FAERS Safety Report 21306130 (Version 1)
Quarter: 2022Q3

REPORT INFORMATION
  Report Type: Spontaneous
  Country: US (occurrence: US)
  Receive Date: 20220908
  Receipt Date: 20220908
  Transmission Date: 20221027
  Serious: Yes (Hospitalization, Other)
  Sender: FDA-Public Use
  Company Number: US-CIPLA LTD.-2022US05372

PATIENT
  Sex: Male

DRUGS (1)
  1. BUPROPION [Suspect]
     Active Substance: BUPROPION
     Indication: Product used for unknown indication
     Dosage: UNK, CRUSHING AND INSUFFLATING 8 TO 9 RANDOM COMBINATIONS OF 150 MG AND 300 MG TABLETS, 2,700 MG EVE
     Route: 045

REACTIONS (4)
  - Drug abuse [Unknown]
  - Substance-induced psychotic disorder [Unknown]
  - Suicide attempt [Unknown]
  - Hyponatraemia [Recovered/Resolved]
